FAERS Safety Report 8775058 (Version 1)
Quarter: 2012Q4

REPORT INFORMATION
  Report Type: 
  Country: US (occurrence: US)
  Receive Date: 20120910
  Receipt Date: 20120910
  Transmission Date: 20130627
  Serious: Yes (Hospitalization)
  Sender: FDA-Public Use
  Company Number: US-BIOGENIDEC-2008BI018051

PATIENT
  Age: 49 Year
  Sex: Female

DRUGS (3)
  1. TYSABRI [Suspect]
     Indication: MULTIPLE SCLEROSIS
     Route: 042
     Dates: start: 20061020, end: 20080421
  2. TYSABRI [Suspect]
     Indication: MULTIPLE SCLEROSIS
     Route: 042
     Dates: start: 20080818, end: 20120509
  3. AVONEX [Concomitant]
     Indication: MULTIPLE SCLEROSIS
     Route: 030

REACTIONS (8)
  - Clostridium difficile infection [Recovered/Resolved]
  - Multiple sclerosis [Unknown]
  - Basal cell carcinoma [Recovered/Resolved]
  - Renal failure acute [Recovered/Resolved]
  - Urinary tract infection enterococcal [Recovered/Resolved]
  - Candida test positive [Recovered/Resolved]
  - Polyarthritis [Not Recovered/Not Resolved]
  - Bone disorder [Unknown]
